FAERS Safety Report 11111751 (Version 3)
Quarter: 2015Q2

REPORT INFORMATION
  Report Type: Report from Study
  Country: US (occurrence: US)
  Receive Date: 20150514
  Receipt Date: 20150630
  Transmission Date: 20150821
  Serious: Yes (Hospitalization)
  Sender: FDA-Public Use
  Company Number: US-ALEXION-A201501606

PATIENT
  Age: 20 Year
  Sex: Female
  Weight: 83.4 kg

DRUGS (22)
  1. PEPCID [Concomitant]
     Active Substance: FAMOTIDINE
     Indication: PRODUCT USED FOR UNKNOWN INDICATION
     Dosage: 20 MG, Q12H
     Route: 048
  2. NYSTATIN. [Concomitant]
     Active Substance: NYSTATIN
     Indication: PROPHYLAXIS
     Dosage: 1 ML, QID
     Route: 048
  3. ZOLOFT [Concomitant]
     Active Substance: SERTRALINE HYDROCHLORIDE
     Indication: DEPRESSION
     Dosage: 100 MG, QHS
     Route: 048
  4. COREG [Concomitant]
     Active Substance: CARVEDILOL
     Indication: BLOOD PRESSURE
     Dosage: 12.5 MG, BID
     Route: 048
  5. ECULIZUMAB [Suspect]
     Active Substance: ECULIZUMAB
     Dosage: UNK
     Route: 042
     Dates: start: 20141209
  6. NEORAL [Concomitant]
     Active Substance: CYCLOSPORINE
     Indication: IMMUNOSUPPRESSION
     Dosage: 200 MG, Q12H
     Route: 048
  7. PERCOCET                           /00446701/ [Concomitant]
     Active Substance: ACETAMINOPHEN\OXYCODONE HYDROCHLORIDE\OXYCODONE TEREPHTHALATE
     Indication: PAIN
     Dosage: 1 TAB, Q6HRS PRN
     Route: 048
  8. DOCUSATE [Concomitant]
     Active Substance: DOCUSATE
     Indication: CONSTIPATION
     Dosage: 200 MG, Q12H
     Route: 048
     Dates: start: 20141219
  9. SODIUM CHLORIDE. [Suspect]
     Active Substance: SODIUM CHLORIDE
     Indication: FLUID REPLACEMENT
     Dosage: 125 ML, Q1H
     Route: 042
     Dates: start: 20141218
  10. ASPIRIN                            /00002701/ [Concomitant]
     Active Substance: ASPIRIN
     Indication: PRODUCT USED FOR UNKNOWN INDICATION
     Dosage: 81 MG, QD
     Route: 048
  11. DIPHENHYDRAMINE [Concomitant]
     Active Substance: DIPHENHYDRAMINE
     Indication: PRODUCT USED FOR UNKNOWN INDICATION
     Dosage: 25 MG, Q6HRS PRN
     Route: 048
  12. FIBERCON [Concomitant]
     Active Substance: CALCIUM POLYCARBOPHIL
     Indication: PRODUCT USED FOR UNKNOWN INDICATION
     Dosage: UNK, TID PRN
     Route: 048
  13. DSS [Concomitant]
     Active Substance: DOCUSATE SODIUM
     Indication: PRODUCT USED FOR UNKNOWN INDICATION
     Dosage: 200 MG, Q12H
     Route: 048
  14. ATIVAN [Concomitant]
     Active Substance: LORAZEPAM
     Indication: PRODUCT USED FOR UNKNOWN INDICATION
     Dosage: 0.5 MG, Q12 HRS PRN
     Route: 048
  15. AMLODIPINE [Concomitant]
     Active Substance: AMLODIPINE BESYLATE
     Indication: BLOOD PRESSURE
     Dosage: 10 MG, QD
     Route: 048
  16. ZORTRESS [Concomitant]
     Active Substance: EVEROLIMUS
     Indication: IMMUNOSUPPRESSION
     Dosage: 4 TABS, Q12H
     Route: 048
  17. FUROSEMIDE. [Concomitant]
     Active Substance: FUROSEMIDE
     Indication: HYPERTENSION
     Dosage: 20 MG, QD
     Route: 048
     Dates: start: 20141220
  18. ECULIZUMAB [Suspect]
     Active Substance: ECULIZUMAB
     Indication: HAEMOLYTIC URAEMIC SYNDROME
     Dosage: 900 MG, QW
     Route: 042
     Dates: start: 20130408, end: 20130429
  19. ECULIZUMAB [Suspect]
     Active Substance: ECULIZUMAB
     Dosage: 1200 MG, Q2W
     Route: 042
     Dates: start: 20130506
  20. DAPSONE. [Concomitant]
     Active Substance: DAPSONE
     Indication: PRODUCT USED FOR UNKNOWN INDICATION
     Dosage: 1 TAB, QD
     Route: 048
  21. LEVORA                             /00022701/ [Concomitant]
     Indication: PRODUCT USED FOR UNKNOWN INDICATION
     Dosage: 1 TAB, QD
     Route: 048
  22. FUROSEMIDE. [Concomitant]
     Active Substance: FUROSEMIDE
     Dosage: 20 MG, SINGLE
     Route: 042
     Dates: start: 20141219, end: 20141219

REACTIONS (3)
  - Vomiting [Recovered/Resolved]
  - Headache [Recovered/Resolved]
  - Nausea [Recovered/Resolved]

NARRATIVE: CASE EVENT DATE: 20141217
